FAERS Safety Report 7965177-X (Version None)
Quarter: 2011Q4

REPORT INFORMATION
  Report Type: 
  Country: None (occurrence: None)
  Receive Date: 20111208
  Receipt Date: 20111123
  Transmission Date: 20120403
  Serious: No
  Sender: FDA-Public Use
  Company Number: US-BAYER-2011-114569

PATIENT
  Age: 85 Year
  Sex: Male
  Weight: 77 kg

DRUGS (7)
  1. METOPROLOL TARTRATE [Concomitant]
  2. LANOXIN [Concomitant]
  3. DILTIAZEM HCL [Concomitant]
  4. ASPIRIN [Concomitant]
  5. ALEVE (CAPLET) [Suspect]
     Indication: SLEEP DISORDER THERAPY
     Dosage: 1 TAB USED ONLY ONE TIME
     Route: 048
     Dates: start: 20111122
  6. PRAVASTATIN [Concomitant]
  7. LISINOPRIL [Concomitant]

REACTIONS (1)
  - HEADACHE [None]
